FAERS Safety Report 20762823 (Version 1)
Quarter: 2022Q2

REPORT INFORMATION
  Report Type: Spontaneous
  Country: US (occurrence: US)
  Receive Date: 20220428
  Receipt Date: 20220428
  Transmission Date: 20220720
  Serious: Yes (Death)
  Sender: FDA-Public Use
  Company Number: US-NOVARTISPH-NVSC2022US098350

PATIENT
  Sex: Female

DRUGS (1)
  1. VOTRIENT [Suspect]
     Active Substance: PAZOPANIB HYDROCHLORIDE
     Indication: Retroperitoneal cancer
     Dosage: 4 DOSAGE FORM, QD
     Route: 048
     Dates: start: 20201121

REACTIONS (2)
  - Death [Fatal]
  - Product use in unapproved indication [Unknown]
